FAERS Safety Report 7067944-6 (Version None)
Quarter: 2010Q4

REPORT INFORMATION
  Report Type: 
  Country: None (occurrence: None)
  Receive Date: 20101028
  Receipt Date: 19680429
  Transmission Date: 20110411
  Serious: Yes (Death)
  Sender: FDA-Public Use
  Company Number: AU-ROCHE-680100035001

PATIENT
  Age: 4 Year
  Sex: Male
  Weight: 17.2 kg

DRUGS (2)
  1. VALIUM [Suspect]
     Indication: EPILEPSY
     Route: 030
     Dates: start: 19680411, end: 19680413
  2. MOGADON [Suspect]
     Indication: EPILEPSY
     Route: 042
     Dates: start: 19680412, end: 19680412

REACTIONS (3)
  - BINOCULAR EYE MOVEMENT DISORDER [None]
  - ENCEPHALITIS HERPES [None]
  - RESPIRATORY FAILURE [None]
